FAERS Safety Report 4973471-X (Version None)
Quarter: 2006Q2

REPORT INFORMATION
  Report Type: 
  Country: None (occurrence: None)
  Receive Date: 20060413
  Receipt Date: 20060413
  Transmission Date: 20061013
  Serious: Yes (Hospitalization)
  Sender: FDA-Public Use
  Company Number: None

PATIENT
  Age: 59 Year
  Sex: Male

DRUGS (2)
  1. THALIDOMIDE [Suspect]
     Indication: MULTIPLE MYELOMA
     Dosage: 200 MG X 28 DAYS PO
     Route: 048
     Dates: start: 20060403
  2. ZOMETA [Suspect]
     Indication: MULTIPLE MYELOMA
     Dosage: 4 MG IV QM
     Route: 042
     Dates: start: 20060403

REACTIONS (8)
  - AZOTAEMIA [None]
  - FASCIITIS [None]
  - INSOMNIA [None]
  - NAUSEA [None]
  - NECROTISING FASCIITIS [None]
  - PAIN IN EXTREMITY [None]
  - RESPIRATORY FAILURE [None]
  - SEPTIC SHOCK [None]
